FAERS Safety Report 13262375 (Version 2)
Quarter: 2017Q4

REPORT INFORMATION
  Report Type: Spontaneous
  Country: DE (occurrence: DE)
  Receive Date: 20170223
  Receipt Date: 20171108
  Transmission Date: 20180320
  Serious: No
  Sender: FDA-Public Use
  Company Number: DE-LUPIN PHARMACEUTICALS INC.-2017-00553

PATIENT
  Age: 49 Year
  Sex: Male
  Weight: 76 kg

DRUGS (1)
  1. TOPIRAMATE. [Suspect]
     Active Substance: TOPIRAMATE
     Dosage: UNK UNK,QD,
     Route: 048
     Dates: start: 20170123, end: 20170201

REACTIONS (4)
  - Rash pustular [Unknown]
  - Erythema [Unknown]
  - Rash pruritic [Unknown]
  - Dermatitis allergic [Unknown]

NARRATIVE: CASE EVENT DATE: 20170123
